FAERS Safety Report 6245514-7 (Version None)
Quarter: 2009Q2

REPORT INFORMATION
  Report Type: 
  Country: None (occurrence: None)
  Receive Date: 20090625
  Receipt Date: 20090615
  Transmission Date: 20091009
  Serious: Yes (Other)
  Sender: FDA-Public Use
  Company Number: US-PFIZER INC-2009227125

PATIENT
  Sex: Female
  Weight: 111.1 kg

DRUGS (1)
  1. REVATIO [Suspect]
     Indication: PULMONARY HYPERTENSION
     Dosage: 20 MG, 3X/DAY
     Route: 048
     Dates: start: 20090530, end: 20090609

REACTIONS (3)
  - DIZZINESS [None]
  - RETINAL OEDEMA [None]
  - VISUAL FIELD DEFECT [None]
